FAERS Safety Report 6372678-7 (Version None)
Quarter: 2009Q3

REPORT INFORMATION
  Report Type: 
  Country: None (occurrence: None)
  Receive Date: 20090924
  Receipt Date: 20090410
  Transmission Date: 20100115
  Serious: Yes (Hospitalization)
  Sender: FDA-Public Use
  Company Number: US-ASTRAZENECA-2008UW27555

PATIENT
  Age: 40 Year
  Sex: Female
  Weight: 117.9 kg

DRUGS (4)
  1. SEROQUEL [Suspect]
     Indication: BIPOLAR I DISORDER
     Route: 048
  2. SEROQUEL [Suspect]
     Indication: BIPOLAR DISORDER
     Route: 048
  3. GEODON [Concomitant]
  4. ZYPREXA [Concomitant]

REACTIONS (2)
  - CHEST PAIN [None]
  - DIABETES MELLITUS [None]
